FAERS Safety Report 6886857-3 (Version None)
Quarter: 2010Q3

REPORT INFORMATION
  Report Type: 
  Country: None (occurrence: None)
  Receive Date: 20100729
  Receipt Date: 20100729
  Transmission Date: 20110219
  Serious: Yes (Hospitalization)
  Sender: FDA-Public Use
  Company Number: None

PATIENT
  Age: 60 Year
  Sex: Male
  Weight: 73 kg

DRUGS (3)
  1. AMIODARONE HCL INJ / BIONICHEPHARMA [Suspect]
     Indication: VENTRICULAR FIBRILLATION
     Dosage: 300 MG, IV, ONCE
     Route: 042
     Dates: start: 20100728
  2. AMIODARONE HCL INJ / BIONICHEPHARMA (2) [Suspect]
  3. 5% DEXTROSE INJ / HOSPIRA [Suspect]

REACTIONS (1)
  - PRODUCT DEPOSIT [None]
